FAERS Safety Report 5573454-5 (Version None)
Quarter: 2007Q4

REPORT INFORMATION
  Report Type: 
  Country: None (occurrence: None)
  Receive Date: 20071226
  Receipt Date: 20071220
  Transmission Date: 20080405
  Serious: Yes (Other)
  Sender: FDA-Public Use
  Company Number: FR-BRISTOL-MYERS SQUIBB COMPANY-13732888

PATIENT
  Sex: Male
  Weight: 2 kg

DRUGS (3)
  1. REYATAZ [Suspect]
     Dosage: START DATES OF EXPOSURE WERE UNCLEAR TO 8 WEEKS.
     Route: 064
     Dates: start: 20060124, end: 20060301
  2. RITONAVIR [Concomitant]
     Dosage: START DATES OF EXPOSURE WERE UNCLEAR TO 8 WEEKS.
     Route: 064
     Dates: start: 20060124, end: 20060301
  3. TRUVADA [Concomitant]
     Dosage: START DATES OF EXPOSURE WERE UNCLEAR TO 8 WEEKS.
     Route: 064
     Dates: start: 20060124, end: 20060301

REACTIONS (3)
  - FOETAL GROWTH RETARDATION [None]
  - PREGNANCY [None]
  - THROMBOCYTOPENIA [None]
